FAERS Safety Report 25575411 (Version 1)
Quarter: 2025Q3

REPORT INFORMATION
  Report Type: Spontaneous
  Country: PE (occurrence: PE)
  Receive Date: 20250718
  Receipt Date: 20250718
  Transmission Date: 20251021
  Serious: Yes (Death, Other)
  Sender: BOEHRINGER INGELHEIM
  Company Number: PE-BoehringerIngelheim-2025-BI-083545

PATIENT
  Sex: Female

DRUGS (1)
  1. NINTEDANIB [Suspect]
     Active Substance: NINTEDANIB
     Indication: Interstitial lung disease

REACTIONS (2)
  - Bone cancer [Fatal]
  - Pulmonary fibrosis [Fatal]
